FAERS Safety Report 13040098 (Version 4)
Quarter: 2017Q4

REPORT INFORMATION
  Report Type: Spontaneous
  Country: FR (occurrence: FR)
  Receive Date: 20161219
  Receipt Date: 20171031
  Transmission Date: 20180320
  Serious: Yes (Death, Life-Threatening, Hospitalization, Other)
  Sender: FDA-Public Use
  Company Number: FR-SA-2016SA216624

PATIENT
  Age: 63 Year
  Sex: Female

DRUGS (9)
  1. SEROPLEX [Suspect]
     Active Substance: ESCITALOPRAM OXALATE
     Dosage: 28 TABS OF 10 MG EACH
     Route: 048
  2. CITALOPRAM [Suspect]
     Active Substance: CITALOPRAM HYDROBROMIDE
     Route: 065
  3. LYSANXIA [Suspect]
     Active Substance: PRAZEPAM
     Dosage: 42 TABS OF 10 MG EACH
     Route: 048
  4. OLMESARTAN MEDOXOMIL. [Suspect]
     Active Substance: OLMESARTAN MEDOXOMIL
     Route: 065
  5. ZOLPIDEM TARTRATE. [Suspect]
     Active Substance: ZOLPIDEM TARTRATE
     Route: 065
  6. SEVIKAR [Suspect]
     Active Substance: AMLODIPINE BESYLATE\OLMESARTAN MEDOXOMIL
     Dosage: 129 TABS, 10 MG EACH, 1.29G AMLODIPINE AND 5.16G OLMESARTAN
     Route: 048
  7. NORDAZEPAM [Suspect]
     Active Substance: NORDAZEPAM
     Route: 065
  8. ATARAX [Suspect]
     Active Substance: HYDROXYZINE HYDROCHLORIDE
     Dosage: 28 TABS OF 25 MG EACH
     Route: 048
  9. AMLODIPINE [Suspect]
     Active Substance: AMLODIPINE BESYLATE
     Route: 065

REACTIONS (19)
  - Metabolic acidosis [Fatal]
  - Hyperlactacidaemia [Fatal]
  - Shock [Fatal]
  - Acute hepatic failure [Fatal]
  - Cardiogenic shock [Fatal]
  - Bezoar [Recovered/Resolved]
  - Multiple organ dysfunction syndrome [Fatal]
  - Gastrointestinal ischaemia [Fatal]
  - Haemodynamic instability [Fatal]
  - Drug level increased [Fatal]
  - Overdose [Fatal]
  - Intentional overdose [Fatal]
  - Blood bicarbonate decreased [Fatal]
  - Blood pressure decreased [Fatal]
  - Renal failure [Fatal]
  - Coma [Fatal]
  - Skin necrosis [Fatal]
  - Toxicity to various agents [Fatal]
  - Heart rate decreased [Fatal]
